FAERS Safety Report 17350875 (Version 2)
Quarter: 2020Q1

REPORT INFORMATION
  Report Type: Report from Study
  Country: US (occurrence: US)
  Receive Date: 20200130
  Receipt Date: 20200327
  Transmission Date: 20200409
  Serious: No
  Sender: FDA-Public Use
  Company Number: NVSC2020US022890

PATIENT
  Age: 1 Year
  Sex: Female

DRUGS (1)
  1. ZOLGENSMA [Suspect]
     Active Substance: ONASEMNOGENE ABEPARVOVEC-XIOI
     Indication: SPINAL MUSCULAR ATROPHY
     Dosage: UNK UNK, ONCE/SINGLE
     Route: 042
     Dates: start: 20200122

REACTIONS (2)
  - Vomiting [Unknown]
  - Liver function test increased [Unknown]

NARRATIVE: CASE EVENT DATE: 20200122
